FAERS Safety Report 4382397-4 (Version None)
Quarter: 2004Q2

REPORT INFORMATION
  Report Type: 
  Country: None (occurrence: None)
  Receive Date: 20040617
  Receipt Date: 20040602
  Transmission Date: 20050107
  Serious: Yes (Hospitalization, Other)
  Sender: FDA-Public Use
  Company Number: 200404741

PATIENT
  Age: 7 Year
  Sex: Female
  Weight: 14 kg

DRUGS (3)
  1. BOTOX [Suspect]
     Indication: CEREBRAL PALSY
     Dosage: 70 UNITS PRN IM
     Route: 030
     Dates: start: 20040512
  2. DEPAKENE [Concomitant]
  3. ANTIBIOTIC [Concomitant]

REACTIONS (3)
  - HEADACHE [None]
  - HYPOTONIA [None]
  - VISUAL DISTURBANCE [None]
